FAERS Safety Report 7788358-7 (Version None)
Quarter: 2011Q3

REPORT INFORMATION
  Report Type: 
  Country: None (occurrence: None)
  Receive Date: 20110930
  Receipt Date: 20110916
  Transmission Date: 20111222
  Serious: Yes (Other)
  Sender: FDA-Public Use
  Company Number: US-JNJFOC-20110909363

PATIENT
  Sex: Female

DRUGS (2)
  1. SENSODYNE-F [Concomitant]
     Indication: DENTAL CLEANING
     Route: 048
  2. COOL MINT LISTERINE MOUTHWASH [Suspect]
     Indication: DENTAL DISORDER PROPHYLAXIS
     Dosage: ONE TABLESPOON
     Route: 048

REACTIONS (1)
  - STOMATITIS [None]
